FAERS Safety Report 6083176-2 (Version None)
Quarter: 2009Q1

REPORT INFORMATION
  Report Type: 
  Country: None (occurrence: None)
  Receive Date: 20090213
  Receipt Date: 20090213
  Transmission Date: 20090719
  Serious: Yes (Other)
  Sender: FDA-Public Use
  Company Number: None

PATIENT
  Sex: Female
  Weight: 62.1428 kg

DRUGS (1)
  1. AMLODIPINE [Suspect]
     Indication: HYPERTENSION
     Dosage: 5 MG ONCE QD PO
     Route: 048
     Dates: start: 20071102, end: 20090113

REACTIONS (3)
  - ABDOMINAL DISCOMFORT [None]
  - LIP SWELLING [None]
  - RASH [None]
